FAERS Safety Report 7624594-8 (Version None)
Quarter: 2011Q3

REPORT INFORMATION
  Report Type: 
  Country: None (occurrence: None)
  Receive Date: 20110720
  Receipt Date: 20091120
  Transmission Date: 20111222
  Serious: Yes (Other)
  Sender: FDA-Public Use
  Company Number: US-BAYER-200940915NA

PATIENT
  Age: 38 Year
  Sex: Female
  Weight: 110.66 kg

DRUGS (21)
  1. TRASYLOL [Suspect]
     Indication: INTRA-AORTIC BALLOON PLACEMENT
     Dosage: INFUSION 1 MILLION KIU
     Route: 042
     Dates: start: 19980203, end: 19980203
  2. SLOW-K [Concomitant]
     Dosage: DAILY
     Route: 048
  3. PROTAMINE SULFATE [Concomitant]
     Dosage: 65, UNK
     Route: 042
     Dates: start: 19980203
  4. MAGNESIUM SULFATE [Concomitant]
     Dosage: 3, UNK
     Route: 042
     Dates: start: 19980203
  5. FENOLDOPAM [Concomitant]
     Dosage: UNK
     Route: 042
     Dates: start: 19980203
  6. LASIX [Concomitant]
     Dosage: DAILY
     Route: 048
  7. ETOMIDATE [Concomitant]
     Dosage: UNK
     Route: 042
     Dates: start: 19980203
  8. TRASYLOL [Suspect]
     Dosage: INCREASED TO 360000 KIU
     Route: 042
     Dates: start: 19980203, end: 19980203
  9. TRASYLOL [Suspect]
     Indication: AORTIC VALVE REPLACEMENT
     Dosage: 1 ML
     Route: 042
     Dates: start: 19980203, end: 19980203
  10. ANCEF [Suspect]
     Dosage: 2 G, UNK
     Route: 042
     Dates: start: 19980203
  11. EPINEPHRINE [Concomitant]
     Dosage: 0.2 MG, UNK
     Route: 042
     Dates: start: 19980203
  12. VERSED [Concomitant]
     Dosage: 5, UNK
     Route: 042
     Dates: start: 19980203
  13. FORANE [Concomitant]
     Dosage: UNK
     Route: 042
     Dates: start: 19980203
  14. TRASYLOL [Suspect]
     Indication: CORONARY ARTERY BYPASS
     Dosage: DECREASED TO 270000 KIU
     Route: 042
     Dates: start: 19980203, end: 19980203
  15. LANOXIN [Concomitant]
     Dosage: DAILY
     Route: 048
  16. SUFENTA PRESERVATIVE FREE [Concomitant]
     Dosage: 100, UNK
     Route: 042
     Dates: start: 19980203
  17. HEPARIN [Concomitant]
     Dosage: UNK
     Route: 042
     Dates: start: 19980203
  18. LIDOCAINE [Concomitant]
     Dosage: 100 MG, UNK
     Route: 042
     Dates: start: 19980203
  19. ASPIRIN [Concomitant]
     Dosage: DAILY
     Route: 048
  20. VECURONIUM BROMIDE [Concomitant]
     Dosage: 12, UNK
     Route: 042
     Dates: start: 19980203
  21. DOPAMINE HCL [Concomitant]
     Dosage: UNK
     Route: 042
     Dates: start: 19980203

REACTIONS (11)
  - INJURY [None]
  - ANXIETY [None]
  - PAIN [None]
  - DEPRESSION [None]
  - ANHEDONIA [None]
  - FEAR [None]
  - UNEVALUABLE EVENT [None]
  - MULTI-ORGAN FAILURE [None]
  - RENAL INJURY [None]
  - RENAL FAILURE [None]
  - DISABILITY [None]
